FAERS Safety Report 4958193-3 (Version None)
Quarter: 2006Q1

REPORT INFORMATION
  Report Type: 
  Country: None (occurrence: None)
  Receive Date: 20060330
  Receipt Date: 20060309
  Transmission Date: 20060701
  Serious: Yes (Disabling)
  Sender: FDA-Public Use
  Company Number: BE-ROCHE-439682

PATIENT
  Age: 46 Year
  Sex: Male
  Weight: 75 kg

DRUGS (4)
  1. PEGASYS [Suspect]
     Route: 058
     Dates: start: 20050915
  2. COPEGUS [Suspect]
     Route: 048
     Dates: start: 20050915
  3. ATARAX [Concomitant]
     Dosage: UNIT: MG.
     Route: 048
     Dates: start: 20050915
  4. DOMINAL [Concomitant]
     Dosage: UNIT: MG.
     Route: 048
     Dates: start: 20050915

REACTIONS (1)
  - DYSKINESIA [None]
